FAERS Safety Report 9404682 (Version 2)
Quarter: 2013Q3

REPORT INFORMATION
  Report Type: Spontaneous
  Country: US (occurrence: None)
  Receive Date: 20130708
  Receipt Date: 20130812
  Transmission Date: 20140515
  Serious: Yes (Hospitalization)
  Sender: FDA-Public Use
  Company Number: 2012033526

PATIENT
  Sex: Female
  Weight: 100.25 kg

DRUGS (26)
  1. HIZENTRA (IMMUNOGLOBULIN HUMAN NORMAL) [Suspect]
     Indication: IMMUNODEFICIENCY COMMON VARIABLE
     Route: 058
     Dates: start: 201208
  2. PREDNISONE (PREDNISONE) [Concomitant]
  3. DIPHENHYDRAMINE (DIPHENYDRAMINE) [Concomitant]
  4. LIDOCAINE (LIDOCAINE) [Concomitant]
  5. EPI-PEN (EPINEPHRINE HYDROCHLORIDE) [Concomitant]
  6. LMX (LIDOCAINE) [Concomitant]
  7. PRAVCHOL (PRAVASTATIN SODIUM) [Concomitant]
  8. PLAQUANIL (HYDROXYCHLOROQUINE PHOSPHATE) [Concomitant]
  9. CIPROFLOXACIN (CIPROFLOXACIN) [Concomitant]
  10. DULERA (MOMETASONE FUROATE) [Concomitant]
  11. AVAPRO (IRBESARTAN) [Concomitant]
  12. PENICILLIN (BENZYLPENICILLIN) [Concomitant]
  13. DOXYCYCLINE (DOXYCYCLINE) [Concomitant]
  14. FLONASE (FLUTICASONE PROPIONATE) [Concomitant]
  15. NEXIUM (ESOMEPRAZOLE MAGNESIUM) [Concomitant]
  16. METOPROL (METRONIDAZOLE) [Concomitant]
  17. IPRATROPIUM (IPRATROPIUM) [Concomitant]
  18. ALBUREROL (SALBUTAMOL) [Concomitant]
  19. COENZYME Q10 (UBIDECARENONE) [Concomitant]
  20. ACETAMINOPHEN (PARACETAMOL) [Concomitant]
  21. CLARITIN (LORATADINE) [Concomitant]
  22. VITAMIN D3 (COLECALCIFEROL) [Concomitant]
  23. FLEXERIL (CYCLOBENZAPRINE HYDROCHLORIDE) [Concomitant]
  24. MUCINEX [Concomitant]
  25. ZETIA (EZETIMIBE) [Concomitant]
  26. KERFLEX (CEFALEXIN) [Concomitant]

REACTIONS (4)
  - Pruritus [None]
  - Pneumonia [None]
  - Medical device complication [None]
  - Thrombosis [None]
